FAERS Safety Report 16748926 (Version 2)
Quarter: 2020Q4

REPORT INFORMATION
  Report Type: Report from Study
  Country: None (occurrence: BR)
  Receive Date: 20190828
  Receipt Date: 20201216
  Transmission Date: 20210113
  Serious: Yes (Hospitalization, Other)
  Sender: FDA-Public Use
  Company Number: BR-ABBVIE-19K-020-2899756-00

PATIENT
  Age: 64 Year
  Sex: Female
  Weight: 66 kg

DRUGS (1)
  1. HUMIRA [Suspect]
     Active Substance: ADALIMUMAB
     Indication: RHEUMATOID ARTHRITIS
     Route: 058
     Dates: start: 20181203, end: 201912

REACTIONS (8)
  - Osteoarthritis [Unknown]
  - Breast mass [Unknown]
  - Immunodeficiency [Unknown]
  - Lung disorder [Recovered/Resolved]
  - Invasive papillary breast carcinoma [Recovered/Resolved]
  - Breast cancer [Recovered/Resolved]
  - Urinary tract infection [Unknown]
  - Pneumonia [Unknown]

NARRATIVE: CASE EVENT DATE: 201903
